FAERS Safety Report 4970433-3 (Version None)
Quarter: 2006Q2

REPORT INFORMATION
  Report Type: 
  Country: None (occurrence: None)
  Receive Date: 20060406
  Receipt Date: 20060322
  Transmission Date: 20061013
  Serious: Yes (Other)
  Sender: FDA-Public Use
  Company Number: 223656

PATIENT
  Sex: 0

DRUGS (1)
  1. AVASTIN [Suspect]
     Dosage: UNK
     Route: 065

REACTIONS (1)
  - GASTROINTESTINAL PERFORATION [None]
